FAERS Safety Report 24376654 (Version 1)
Quarter: 2024Q3

REPORT INFORMATION
  Report Type: Spontaneous
  Country: ES (occurrence: ES)
  Receive Date: 20240930
  Receipt Date: 20240930
  Transmission Date: 20241016
  Serious: Yes (Hospitalization)
  Sender: BOEHRINGER INGELHEIM
  Company Number: ES-BoehringerIngelheim-2024-BI-053133

PATIENT
  Age: 77 Year
  Sex: Male
  Weight: 80 kg

DRUGS (11)
  1. OFEV [Suspect]
     Active Substance: NINTEDANIB
     Indication: Pulmonary fibrosis
     Dates: start: 2024, end: 202409
  2. OFEV [Suspect]
     Active Substance: NINTEDANIB
     Dosage: AT NOON
     Dates: start: 202409
  3. BROTIZOLAM [Concomitant]
     Active Substance: BROTIZOLAM
     Indication: Somnolence
  4. RAMIPRIL [Concomitant]
     Active Substance: RAMIPRIL
     Indication: Myocardial infarction
  5. ASPIRIN [Concomitant]
     Active Substance: ASPIRIN
     Indication: Myocardial infarction
  6. COLCHICINE [Concomitant]
     Active Substance: COLCHICINE
     Indication: Arteritis
     Dosage: 0.5MG/5MG
  7. DUPHALAC [Concomitant]
     Active Substance: LACTULOSE
     Indication: Prophylaxis
  8. OMEPRAZOLE [Concomitant]
     Active Substance: OMEPRAZOLE
     Indication: Gastrointestinal disorder prophylaxis
  9. TENORMIN [Concomitant]
     Active Substance: ATENOLOL
     Indication: Heart rate increased
  10. EZETIMIBE\ROSUVASTATIN [Concomitant]
     Active Substance: EZETIMIBE\ROSUVASTATIN
     Indication: Blood cholesterol abnormal
  11. NITROGLYCERIN [Concomitant]
     Active Substance: NITROGLYCERIN
     Indication: Chest pain
     Route: 060

REACTIONS (8)
  - Angina pectoris [Recovered/Resolved]
  - Nausea [Recovering/Resolving]
  - Diarrhoea [Recovering/Resolving]
  - Headache [Recovering/Resolving]
  - Decreased appetite [Not Recovered/Not Resolved]
  - Malaise [Recovered/Resolved]
  - Abdominal discomfort [Recovering/Resolving]
  - Dizziness [Recovered/Resolved]

NARRATIVE: CASE EVENT DATE: 20240101
